FAERS Safety Report 8985544 (Version 2)
Quarter: 2013Q1

REPORT INFORMATION
  Report Type: Spontaneous
  Country: NO (occurrence: NO)
  Receive Date: 20121226
  Receipt Date: 20130102
  Transmission Date: 20140127
  Serious: Yes (Hospitalization, Other)
  Sender: FDA-Public Use
  Company Number: NO-JNJFOC-20121206290

PATIENT
  Sex: Male
  Weight: 70 kg

DRUGS (3)
  1. RISPERDAL CONSTA [Suspect]
     Indication: SCHIZOAFFECTIVE DISORDER
     Route: 030
     Dates: start: 201201, end: 20120531
  2. RISPERDAL CONSTA [Suspect]
     Indication: SCHIZOAFFECTIVE DISORDER
     Route: 030
     Dates: start: 20110820, end: 201111
  3. RISPERDAL CONSTA [Suspect]
     Indication: SCHIZOAFFECTIVE DISORDER
     Route: 030
     Dates: start: 201111, end: 201201

REACTIONS (7)
  - Impulse-control disorder [Recovering/Resolving]
  - Fatigue [Recovering/Resolving]
  - Aggression [Recovering/Resolving]
  - Tourette^s disorder [Recovering/Resolving]
  - Chest pain [Recovering/Resolving]
  - Dysphonia [Recovering/Resolving]
  - Face presentation [Recovering/Resolving]
